FAERS Safety Report 19975263 (Version 1)
Quarter: 2021Q4

REPORT INFORMATION
  Report Type: Spontaneous
  Country: US (occurrence: US)
  Receive Date: 20211020
  Receipt Date: 20211020
  Transmission Date: 20220303
  Serious: No
  Sender: FDA-Public Use
  Company Number: US-PFIZER INC-2021767688

PATIENT
  Age: 84 Year
  Sex: Male
  Weight: 158 kg

DRUGS (2)
  1. INLYTA [Suspect]
     Active Substance: AXITINIB
     Dosage: 5 MG
  2. INLYTA [Suspect]
     Active Substance: AXITINIB
     Dosage: 3 MG, 2X/DAY

REACTIONS (6)
  - Pyrexia [Unknown]
  - Asthenia [Unknown]
  - Constipation [Unknown]
  - Fall [Unknown]
  - Arthralgia [Unknown]
  - Neoplasm progression [Unknown]
